FAERS Safety Report 9204281 (Version 1)
Quarter: 2013Q2

REPORT INFORMATION
  Report Type: Spontaneous
  Country: US (occurrence: None)
  Receive Date: 20130401
  Receipt Date: 20130401
  Transmission Date: 20140414
  Serious: Yes (Other)
  Sender: FDA-Public Use
  Company Number: None

PATIENT
  Age: 0 Day
  Sex: Male
  Weight: 24.49 kg

DRUGS (1)
  1. CVS CHILDRENS ALLERGY RELIEF [Suspect]
     Indication: VOMITING
     Dosage: 1.5 TEASPOON FULLS
     Route: 048
     Dates: start: 20130324, end: 20130329

REACTIONS (3)
  - Product substitution issue [None]
  - Vomiting [None]
  - Product quality issue [None]
